FAERS Safety Report 12760332 (Version 1)
Quarter: 2016Q3

REPORT INFORMATION
  Report Type: Spontaneous
  Country: AT (occurrence: AT)
  Receive Date: 20160919
  Receipt Date: 20160919
  Transmission Date: 20161109
  Serious: Yes (Other)
  Sender: FDA-Public Use
  Company Number: AT-BAYER-2016-180238

PATIENT
  Age: 64 Year
  Sex: Male

DRUGS (1)
  1. STIVARGA [Suspect]
     Active Substance: REGORAFENIB
     Indication: ADENOCARCINOMA OF COLON
     Dosage: 160 MG, QD
     Dates: start: 201605, end: 201607

REACTIONS (3)
  - Anaemia [None]
  - Palmar-plantar erythrodysaesthesia syndrome [None]
  - Adenocarcinoma of colon [None]

NARRATIVE: CASE EVENT DATE: 201607
